FAERS Safety Report 8273426-6 (Version None)
Quarter: 2012Q2

REPORT INFORMATION
  Report Type: 
  Country: None (occurrence: None)
  Receive Date: 20120411
  Receipt Date: 20120409
  Transmission Date: 20120825
  Serious: No
  Sender: FDA-Public Use
  Company Number: US-PFIZER INC-2012041460

PATIENT
  Sex: Female
  Weight: 70 kg

DRUGS (1)
  1. IBUPROFEN (ADVIL) [Suspect]
     Indication: HEADACHE
     Dosage: 200 MG, 1X/DAY
     Route: 048
     Dates: start: 20120213, end: 20120213

REACTIONS (3)
  - ABDOMINAL PAIN [None]
  - ABDOMINAL PAIN UPPER [None]
  - DYSGEUSIA [None]
